FAERS Safety Report 18577250 (Version 1)
Quarter: 2020Q4

REPORT INFORMATION
  Report Type: Spontaneous
  Country: FR (occurrence: FR)
  Receive Date: 20201203
  Receipt Date: 20201203
  Transmission Date: 20210114
  Serious: Yes (Hospitalization)
  Sender: FDA-Public Use
  Company Number: FR-JNJFOC-20201152703

PATIENT
  Age: 23 Year
  Sex: Female

DRUGS (1)
  1. SIMPONI [Suspect]
     Active Substance: GOLIMUMAB
     Indication: PRODUCT USED FOR UNKNOWN INDICATION
     Route: 058

REACTIONS (5)
  - Inappropriate schedule of product administration [Unknown]
  - Product use issue [Unknown]
  - Intercepted medication error [Unknown]
  - Psychiatric symptom [Unknown]
  - Off label use [Unknown]

NARRATIVE: CASE EVENT DATE: 20201103
